FAERS Safety Report 9100241 (Version 2)
Quarter: 2013Q4

REPORT INFORMATION
  Report Type: Spontaneous
  Country: US (occurrence: US)
  Receive Date: 20130214
  Receipt Date: 20131119
  Transmission Date: 20140711
  Serious: Yes (Other)
  Sender: FDA-Public Use
  Company Number: US-ASTELLAS-2013US001469

PATIENT
  Age: 78 Year
  Sex: Female
  Weight: 60 kg

DRUGS (1)
  1. VESICARE [Suspect]
     Indication: HYPERTONIC BLADDER
     Dosage: 5 MG, BID
     Route: 048
     Dates: start: 20130201, end: 20130204

REACTIONS (9)
  - Inappropriate schedule of drug administration [Unknown]
  - Abasia [Unknown]
  - Dyspnoea [Unknown]
  - Foaming at mouth [Unknown]
  - Flushing [Unknown]
  - Myalgia [Unknown]
  - Abdominal discomfort [Unknown]
  - Vision blurred [Unknown]
  - Dry mouth [Unknown]
